FAERS Safety Report 9158410 (Version 1)
Quarter: 2013Q1

REPORT INFORMATION
  Report Type: Spontaneous
  Country: BR (occurrence: BR)
  Receive Date: 20130312
  Receipt Date: 20130312
  Transmission Date: 20140127
  Serious: Yes (Other)
  Sender: FDA-Public Use
  Company Number: BR-BRISTOL-MYERS SQUIBB COMPANY-17456252

PATIENT
  Age: 87 Year
  Sex: Female
  Weight: 60 kg

DRUGS (5)
  1. ONGLYZA TABS 5 MG [Suspect]
     Indication: TYPE 2 DIABETES MELLITUS
     Dosage: 1DF=1/2 TABLET OF 5 MG
     Route: 048
  2. PURAN T4 [Concomitant]
  3. LOSARTAN [Concomitant]
  4. VERAPAMIL [Concomitant]
  5. CLOTRIMAZOLE [Concomitant]

REACTIONS (1)
  - Neoplasm malignant [Unknown]
